FAERS Safety Report 21735344 (Version 1)
Quarter: 2022Q4

REPORT INFORMATION
  Report Type: Report from Study
  Country: US (occurrence: US)
  Receive Date: 20221215
  Receipt Date: 20221215
  Transmission Date: 20230113
  Serious: No
  Sender: FDA-Public Use
  Company Number: US-ABBVIE-4237786

PATIENT
  Sex: Male

DRUGS (1)
  1. IMBRUVICA [Suspect]
     Active Substance: IBRUTINIB
     Indication: Mantle cell lymphoma
     Dosage: ONSET DATE FOR TOOTH INFECTION THAT MIGHT TRIGGERED SWELLING OF LYMPH NODES ALL OVER THE BODY WAS...
     Route: 048
     Dates: start: 20220622

REACTIONS (2)
  - Lymphadenopathy [Not Recovered/Not Resolved]
  - Tooth infection [Unknown]
